FAERS Safety Report 4668593-7 (Version None)
Quarter: 2005Q2

REPORT INFORMATION
  Report Type: 
  Country: None (occurrence: None)
  Receive Date: 20050523
  Receipt Date: 20040831
  Transmission Date: 20051028
  Serious: Yes (Other)
  Sender: FDA-Public Use
  Company Number: PHNU2004DE03085

PATIENT
  Sex: Female
  Weight: 68 kg

DRUGS (2)
  1. VINORELBINE TARTRATE [Concomitant]
     Indication: BREAST CANCER FEMALE
     Dosage: 52 MG, UNK
     Route: 042
     Dates: start: 20040706, end: 20041209
  2. ZOMETA [Suspect]
     Indication: METASTASES TO BONE
     Dosage: 4 MG, UNK
     Route: 042
     Dates: start: 20030303, end: 20040722

REACTIONS (2)
  - OSTEONECROSIS [None]
  - TOOTH DISORDER [None]
